FAERS Safety Report 8971203 (Version 1)
Quarter: 2012Q4

REPORT INFORMATION
  Report Type: 
  Country: FR (occurrence: FR)
  Receive Date: 20121218
  Receipt Date: 20121218
  Transmission Date: 20130627
  Serious: Yes (Congenital Anomaly)
  Sender: FDA-Public Use
  Company Number: FR-ASTELLAS-2012EU010863

PATIENT
  Sex: Female

DRUGS (4)
  1. PROGRAF [Suspect]
     Dosage: UNK
     Route: 064
  2. IMUREL                             /00001501/ [Concomitant]
     Dosage: 100 mg, Unknown/D
     Route: 064
  3. CORTANCYL [Concomitant]
     Dosage: UNK
     Route: 064
  4. TAHOR [Concomitant]
     Dosage: UNK
     Route: 064

REACTIONS (1)
  - Turner^s syndrome [Unknown]
